FAERS Safety Report 4385536-4 (Version None)
Quarter: 2004Q2

REPORT INFORMATION
  Report Type: 
  Country: None (occurrence: None)
  Receive Date: 20040625
  Receipt Date: 20040625
  Transmission Date: 20050107
  Serious: No
  Sender: FDA-Public Use
  Company Number: None

PATIENT
  Age: 63 Year
  Sex: Female
  Weight: 49.4421 kg

DRUGS (1)
  1. LITHIUM [Suspect]
     Indication: BIPOLAR I DISORDER
     Dosage: PO
     Route: 048
     Dates: end: 20040315

REACTIONS (12)
  - BIPOLAR DISORDER [None]
  - CONDITION AGGRAVATED [None]
  - CONFUSIONAL STATE [None]
  - DEHYDRATION [None]
  - DIALYSIS [None]
  - DRUG TOXICITY [None]
  - ENCEPHALOPATHY [None]
  - MARKEDLY REDUCED DIETARY INTAKE [None]
  - RENAL FAILURE ACUTE [None]
  - TREMOR [None]
  - URINARY TRACT INFECTION [None]
  - VAGINAL MYCOSIS [None]
